FAERS Safety Report 15931452 (Version 1)
Quarter: 2019Q1

REPORT INFORMATION
  Report Type: Spontaneous
  Country: FR (occurrence: FR)
  Receive Date: 20190207
  Receipt Date: 20190207
  Transmission Date: 20190417
  Serious: Yes (Hospitalization, Other)
  Sender: FDA-Public Use
  Company Number: FR-SA-2019SA027119

PATIENT
  Age: 25 Year
  Sex: Female
  Weight: 60 kg

DRUGS (7)
  1. DEXCHLORPHENIRAMINE MALEATE. [Suspect]
     Active Substance: DEXCHLORPHENIRAMINE MALEATE
     Indication: PROPHYLAXIS
     Dosage: 5 MG, QD
     Route: 042
     Dates: start: 20051102, end: 20051102
  2. IMUREL [AZATHIOPRINE] [Concomitant]
     Active Substance: AZATHIOPRINE
     Indication: CROHN^S DISEASE
     Dosage: 125 MG/KG, QD
     Route: 048
  3. GLUCOSE [Concomitant]
     Active Substance: DEXTROSE
     Dosage: DOSAGE FORM: UNSPECIFIED
     Route: 065
  4. REMICADE [Suspect]
     Active Substance: INFLIXIMAB
     Indication: CROHN^S DISEASE
     Dosage: DOSAGE FORM: LYOPHILIZED POWDER, 6TH INFUSION
     Route: 042
     Dates: start: 20051102, end: 20051102
  5. REMICADE [Suspect]
     Active Substance: INFLIXIMAB
     Indication: ENTERITIS
     Dosage: 8 WEEK; DOSAGE FORM: LYOPHILIZED POWDER, 6TH INFUSION
     Route: 042
  6. FERROUS SULPHATE [FERROUS SULFATE] [Concomitant]
     Active Substance: FERROUS SULFATE
     Dosage: DOSAGE FORM: UNSPECIFIED
     Route: 065
  7. HYDROCORTISONE. [Suspect]
     Active Substance: HYDROCORTISONE
     Indication: PROPHYLAXIS
     Dosage: DOSAGE FORM: UNKNOWN
     Route: 042
     Dates: start: 20051102, end: 20051102

REACTIONS (5)
  - Atrioventricular block complete [Recovered/Resolved]
  - Malaise [Recovered/Resolved]
  - Adams-Stokes syndrome [Recovered/Resolved]
  - Syncope [Recovered/Resolved]
  - Loss of consciousness [Recovered/Resolved]

NARRATIVE: CASE EVENT DATE: 20051102
